FAERS Safety Report 22620071 (Version 2)
Quarter: 2023Q2

REPORT INFORMATION
  Report Type: Spontaneous
  Country: US (occurrence: US)
  Receive Date: 20230620
  Receipt Date: 20230621
  Transmission Date: 20230722
  Serious: No
  Sender: FDA-Public Use
  Company Number: US-PFM-2023-02130

PATIENT
  Sex: Male
  Weight: 11.469 kg

DRUGS (1)
  1. HEMANGEOL [Suspect]
     Active Substance: PROPRANOLOL HYDROCHLORIDE
     Indication: Haemangioma
     Dosage: 2.7 ML, BID (2/DAY)
     Route: 048

REACTIONS (3)
  - Influenza [Unknown]
  - Gastroenteritis viral [Recovering/Resolving]
  - Nasal congestion [Recovering/Resolving]
